FAERS Safety Report 4552157-X (Version None)
Quarter: 2004Q4

REPORT INFORMATION
  Report Type: 
  Country: None (occurrence: None)
  Receive Date: 20041217
  Receipt Date: 20040805
  Transmission Date: 20050328
  Serious: No
  Sender: FDA-Public Use
  Company Number: 2004-BP-05954BP (1)

PATIENT
  Age: 78 Year
  Sex: Female
  Weight: 49.9 kg

DRUGS (4)
  1. SPIRIVA [Suspect]
     Indication: CHRONIC OBSTRUCTIVE AIRWAYS DISEASE
     Dosage: 18 MCG (18 MCG) IH
     Dates: start: 20040701
  2. OXYGEN [Concomitant]
  3. ADVAIR (SERETIDE MITE) [Concomitant]
  4. ALBUTEROL [Concomitant]

REACTIONS (2)
  - OEDEMA PERIPHERAL [None]
  - WEIGHT INCREASED [None]
